FAERS Safety Report 10900862 (Version 1)
Quarter: 2015Q1

REPORT INFORMATION
  Report Type: Spontaneous
  Country: US (occurrence: US)
  Receive Date: 20150310
  Receipt Date: 20150310
  Transmission Date: 20150721
  Serious: No
  Sender: FDA-Public Use
  Company Number: US-PFIZER INC-2015081656

PATIENT
  Age: 42 Year
  Sex: Female
  Weight: 109 kg

DRUGS (1)
  1. LYRICA [Suspect]
     Active Substance: PREGABALIN
     Indication: MULTIPLE SCLEROSIS
     Dosage: 300 MG, 3X/DAY

REACTIONS (3)
  - Overdose [Unknown]
  - Speech disorder [Unknown]
  - Anxiety [Unknown]
